FAERS Safety Report 25512025 (Version 1)
Quarter: 2025Q3

REPORT INFORMATION
  Report Type: Spontaneous
  Country: US (occurrence: US)
  Receive Date: 20250703
  Receipt Date: 20250703
  Transmission Date: 20251021
  Serious: No
  Sender: RADIUS PHARM
  Company Number: US-RADIUS HEALTH INC.-2024US007592

PATIENT
  Age: 65 Year
  Sex: Female

DRUGS (3)
  1. TYMLOS [Suspect]
     Active Substance: ABALOPARATIDE
     Indication: Senile osteoporosis
     Route: 058
     Dates: start: 20240911, end: 20240912
  2. CALCIUM [Concomitant]
     Active Substance: CALCIUM
     Indication: Product used for unknown indication
  3. VITAMIN D3 [Concomitant]
     Active Substance: CHOLECALCIFEROL
     Indication: Product used for unknown indication

REACTIONS (7)
  - Chills [Unknown]
  - Toothache [Recovering/Resolving]
  - Muscular weakness [Recovering/Resolving]
  - Brain fog [Recovering/Resolving]
  - Gingival pain [Recovering/Resolving]
  - Headache [Unknown]
  - Facial pain [Recovering/Resolving]

NARRATIVE: CASE EVENT DATE: 20240911
